FAERS Safety Report 5529019-4 (Version None)
Quarter: 2007Q4

REPORT INFORMATION
  Report Type: 
  Country: None (occurrence: None)
  Receive Date: 20071126
  Receipt Date: 20071115
  Transmission Date: 20080405
  Serious: Yes (Hospitalization)
  Sender: FDA-Public Use
  Company Number: 2007SP018571

PATIENT
  Age: 74 Year
  Sex: Female
  Weight: 60 kg

DRUGS (1)
  1. TEMODAL [Suspect]
     Indication: GLIOBLASTOMA
     Dosage: 260 MG; QD; PO
     Route: 048
     Dates: start: 20070718, end: 20070722

REACTIONS (7)
  - ENTEROCOCCAL INFECTION [None]
  - FALL [None]
  - HERPES ZOSTER [None]
  - NEURALGIA [None]
  - PANCYTOPENIA [None]
  - PNEUMONIA KLEBSIELLA [None]
  - URINARY TRACT INFECTION [None]
